FAERS Safety Report 12190851 (Version 1)
Quarter: 2016Q1

REPORT INFORMATION
  Report Type: Spontaneous
  Country: US (occurrence: None)
  Receive Date: 20160317
  Receipt Date: 20160317
  Transmission Date: 20160526
  Serious: Yes (Other)
  Sender: FDA-Public Use
  Company Number: None

PATIENT
  Age: 10 Year
  Sex: Female
  Weight: 45.36 kg

DRUGS (2)
  1. FLINTSTONE VITAMINS [Concomitant]
  2. PREDNISOLONE 15MG/5ML SOLUTION CVS PHARMACY #3151 [Suspect]
     Active Substance: PREDNISOLONE
     Indication: UPPER RESPIRATORY TRACT INFECTION
     Dosage: GIVE 18 ? TEASPONS BY MOUTH EVERY DAY QD LIQUID - ORAL WITH JUICE OR WATER AND APPLESAUCE
     Route: 048
     Dates: start: 20150223, end: 201502

REACTIONS (4)
  - Dizziness [None]
  - Movement disorder [None]
  - Skin discolouration [None]
  - Vomiting [None]

NARRATIVE: CASE EVENT DATE: 20150222
